FAERS Safety Report 12266145 (Version 1)
Quarter: 2016Q2

REPORT INFORMATION
  Report Type: Spontaneous
  Country: US (occurrence: None)
  Receive Date: 20160413
  Receipt Date: 20160413
  Transmission Date: 20160815
  Serious: Yes (Other)
  Sender: FDA-Public Use
  Company Number: None

PATIENT
  Age: 50 Year
  Sex: Male

DRUGS (1)
  1. SUTENT [Suspect]
     Active Substance: SUNITINIB MALATE
     Indication: RENAL CANCER
     Dosage: 50 MG QD(14 DAYS; 7 OFF) ORAL
     Route: 048
     Dates: start: 20160108

REACTIONS (2)
  - Gingival swelling [None]
  - Stomatitis [None]

NARRATIVE: CASE EVENT DATE: 2016
